FAERS Safety Report 5208003-4 (Version None)
Quarter: 2007Q1

REPORT INFORMATION
  Report Type: 
  Country: None (occurrence: None)
  Receive Date: 20070115
  Receipt Date: 20070104
  Transmission Date: 20070707
  Serious: Yes (Other)
  Sender: FDA-Public Use
  Company Number: PHBS2007BR00619

PATIENT
  Age: 54 Year
  Sex: Female

DRUGS (1)
  1. ZOMETA [Suspect]
     Indication: BREAST CANCER
     Dosage: UNK, UNK
     Route: 065

REACTIONS (5)
  - BONE DISORDER [None]
  - DENTAL IMPLANTATION [None]
  - DENTAL OPERATION [None]
  - OSTEONECROSIS [None]
  - WOUND DEBRIDEMENT [None]
